FAERS Safety Report 6661939-X (Version None)
Quarter: 2010Q1

REPORT INFORMATION
  Report Type: 
  Country: None (occurrence: None)
  Receive Date: 20100331
  Receipt Date: 20091014
  Transmission Date: 20100710
  Serious: Yes (Other)
  Sender: FDA-Public Use
  Company Number: US-BRISTOL-MYERS SQUIBB COMPANY-14816086

PATIENT
  Age: 57 Year
  Sex: Male
  Weight: 72 kg

DRUGS (8)
  1. ERBITUX [Suspect]
     Indication: RECTAL CANCER
     Dosage: ACTUAL DOSE RECIEVED 10CC
     Route: 042
     Dates: start: 20081229
  2. ZIAC [Concomitant]
     Dosage: 1 DOSAGE FORM = 10 MG/6.25 MG
  3. GLUCOSAMINE [Concomitant]
  4. MULTI-VITAMIN [Concomitant]
  5. COMPAZINE [Concomitant]
     Route: 048
  6. PHENERGAN HCL [Concomitant]
     Route: 048
  7. DECADRON [Concomitant]
     Indication: PREMEDICATION
     Route: 042
  8. ALOXI [Concomitant]
     Indication: PREMEDICATION
     Route: 042

REACTIONS (1)
  - ANAPHYLACTIC REACTION [None]
